FAERS Safety Report 15996253 (Version 2)
Quarter: 2019Q3

REPORT INFORMATION
  Report Type: Report from Study
  Country: US (occurrence: US)
  Receive Date: 20190222
  Receipt Date: 20190703
  Transmission Date: 20191004
  Serious: Yes (Hospitalization)
  Sender: FDA-Public Use
  Company Number: US-BIOVITRUM-2019US0325

PATIENT
  Age: 13 Year
  Sex: Male
  Weight: 59.3 kg

DRUGS (3)
  1. KINERET [Suspect]
     Active Substance: ANAKINRA
     Indication: CHRONIC INFANTILE NEUROLOGICAL CUTANEOUS AND ARTICULAR SYNDROME
     Route: 058
     Dates: start: 20050901
  2. COLCHICINE. [Concomitant]
     Active Substance: COLCHICINE
     Indication: MOUTH ULCERATION
     Route: 048
     Dates: start: 20151101
  3. PREDNISOLINE OPHTHAMLIC DROPS [Concomitant]
     Indication: IRITIS
     Dosage: 1 DROP PER EYE BID
     Route: 047
     Dates: start: 20170301

REACTIONS (1)
  - Post lumbar puncture syndrome [Recovered/Resolved]

NARRATIVE: CASE EVENT DATE: 20170831
